FAERS Safety Report 10155465 (Version 1)
Quarter: 2014Q2

REPORT INFORMATION
  Report Type: Report from Study
  Country: US (occurrence: US)
  Receive Date: 20140506
  Receipt Date: 20140506
  Transmission Date: 20141212
  Serious: Yes (Life-Threatening, Hospitalization, Disabling, Other)
  Sender: FDA-Public Use
  Company Number: US-BAYER-2014-065037

PATIENT
  Age: 63 Year
  Sex: Male
  Weight: 88.89 kg

DRUGS (2)
  1. CIPROFLOXACIN MONOHYDROCHLORIDE [Suspect]
     Indication: CYSTITIS
     Dosage: 750 MG, BID
     Route: 048
     Dates: start: 20080421, end: 20080430
  2. CEFDINIR [Suspect]
     Indication: CYSTITIS
     Dosage: 300 MG, BID
     Route: 048
     Dates: start: 20080424, end: 20080430

REACTIONS (2)
  - Guillain-Barre syndrome [Not Recovered/Not Resolved]
  - Nerve injury [Not Recovered/Not Resolved]
